FAERS Safety Report 7277444-6 (Version None)
Quarter: 2011Q1

REPORT INFORMATION
  Report Type: 
  Country: None (occurrence: None)
  Receive Date: 20110207
  Receipt Date: 20110126
  Transmission Date: 20110831
  Serious: Yes (Death)
  Sender: FDA-Public Use
  Company Number: JP-SANOFI-AVENTIS-2010SA071616

PATIENT
  Age: 64 Year
  Sex: Male
  Weight: 45 kg

DRUGS (19)
  1. ELPLAT [Suspect]
     Indication: COLON CANCER
     Route: 041
     Dates: start: 20101119, end: 20101119
  2. DIAZEPAM [Concomitant]
     Indication: RESTLESSNESS
     Route: 030
     Dates: start: 20101120, end: 20101120
  3. XYLOCAINE [Concomitant]
     Indication: PROPHYLAXIS
     Route: 041
     Dates: start: 20101121, end: 20101122
  4. 5-FU [Suspect]
     Indication: COLON CANCER
     Route: 040
     Dates: start: 20101119, end: 20101119
  5. TERPERAN [Concomitant]
     Indication: NAUSEA
     Route: 042
     Dates: start: 20101120, end: 20101120
  6. AMINO ACIDS NOS/ELECTROLYTES NOS/MALIC ACID [Concomitant]
     Indication: NUTRITIONAL SUPPORT
     Route: 042
     Dates: start: 20101120, end: 20101120
  7. METILON [Concomitant]
     Route: 042
     Dates: start: 20101120, end: 20101122
  8. XYLOCAINE [Concomitant]
     Route: 042
     Dates: start: 20101121, end: 20101122
  9. INOVAN [Concomitant]
     Indication: BLOOD PRESSURE DECREASED
     Route: 041
     Dates: start: 20101121, end: 20101122
  10. 5-FU [Suspect]
     Route: 041
     Dates: start: 20101119, end: 20101119
  11. METILON [Concomitant]
     Indication: PYREXIA
     Route: 041
     Dates: start: 20101120, end: 20101122
  12. ADRENALINE [Concomitant]
     Route: 042
     Dates: start: 20101122, end: 20101122
  13. DOBUTAMINE HCL [Concomitant]
     Indication: BLOOD PRESSURE DECREASED
     Route: 041
     Dates: start: 20101121, end: 20101122
  14. MAGNESIUM SULFATE [Concomitant]
     Indication: PROPHYLAXIS
     Route: 041
     Dates: start: 20101122, end: 20101122
  15. NEOPHAGEN [Concomitant]
     Indication: PROPHYLAXIS
     Route: 042
     Dates: start: 20101121, end: 20101122
  16. MEYLON [Concomitant]
     Indication: ACIDOSIS
     Route: 041
     Dates: start: 20101121, end: 20101121
  17. SERENACE [Concomitant]
     Indication: RESTLESSNESS
     Route: 041
     Dates: start: 20101120, end: 20101120
  18. OMEPRAL [Concomitant]
     Indication: PROPHYLAXIS AGAINST GASTROINTESTINAL ULCER
     Route: 042
     Dates: start: 20101121, end: 20101122
  19. CALCIUM LEVOFOLINATE [Concomitant]
     Indication: COLON CANCER
     Route: 041
     Dates: start: 20101119, end: 20101119

REACTIONS (3)
  - CARDIAC ARREST [None]
  - CONFUSIONAL STATE [None]
  - VENTRICULAR FIBRILLATION [None]
